FAERS Safety Report 6667516-9 (Version None)
Quarter: 2010Q2

REPORT INFORMATION
  Report Type: 
  Country: None (occurrence: None)
  Receive Date: 20100401
  Receipt Date: 20100318
  Transmission Date: 20101027
  Serious: Yes (Other)
  Sender: FDA-Public Use
  Company Number: JPI-P-010011

PATIENT
  Age: 27 Year
  Sex: Female
  Weight: 81.6475 kg

DRUGS (4)
  1. XYREM [Suspect]
     Indication: NARCOLEPSY
     Dosage: 4.5 GM (2.25 GM, 2 IN 1 D),ORAL; 2.2 GM (1.1 GM, 2 IN 1 D), ORAL
     Route: 048
     Dates: start: 20100226, end: 20100302
  2. XYREM [Suspect]
     Indication: NARCOLEPSY
     Dosage: 4.5 GM (2.25 GM, 2 IN 1 D),ORAL; 2.2 GM (1.1 GM, 2 IN 1 D), ORAL
     Route: 048
     Dates: start: 20100304
  3. OMEPRAZOLE [Concomitant]
  4. DOXYCYCLINE HYCLATE [Concomitant]

REACTIONS (5)
  - DEHYDRATION [None]
  - DIZZINESS [None]
  - FEELING ABNORMAL [None]
  - FEELING HOT [None]
  - HEADACHE [None]
